FAERS Safety Report 9886831 (Version 1)
Quarter: 2014Q1

REPORT INFORMATION
  Report Type: Not Available
  Country: FR (occurrence: FR)
  Receive Date: 20140210
  Receipt Date: 20140210
  Transmission Date: 20141002
  Serious: Yes (Hospitalization, Other)
  Sender: FDA-Public Use
  Company Number: FR-RB-063224-14

PATIENT
  Age: 42 Year
  Sex: Male

DRUGS (2)
  1. SUBUTEX [Suspect]
     Indication: DRUG DEPENDENCE
     Route: 042
  2. SUBUTEX [Suspect]
     Route: 060

REACTIONS (4)
  - Intervertebral discitis [Recovering/Resolving]
  - Arthritis [Unknown]
  - Abscess limb [Unknown]
  - Intentional drug misuse [Unknown]
